FAERS Safety Report 4325763-5 (Version None)
Quarter: 2004Q1

REPORT INFORMATION
  Report Type: 
  Country: None (occurrence: None)
  Receive Date: 20040324
  Receipt Date: 20040304
  Transmission Date: 20041129
  Serious: Yes (Death)
  Sender: FDA-Public Use
  Company Number: JP_040302741

PATIENT
  Age: 37 Year
  Sex: Male

DRUGS (4)
  1. ZYPREXA [Suspect]
     Indication: SCHIZOPHRENIA
     Dosage: 20 MG DAY
  2. AKINETON [Concomitant]
  3. HALOPERIDOL [Concomitant]
  4. HIBERNA (PROMETHAZINE HYDROCHLORIDE) [Concomitant]

REACTIONS (1)
  - COMPLETED SUICIDE [None]
